FAERS Safety Report 16645738 (Version 2)
Quarter: 2020Q3

REPORT INFORMATION
  Report Type: Spontaneous
  Country: US (occurrence: US)
  Receive Date: 20190730
  Receipt Date: 20200814
  Transmission Date: 20201102
  Serious: No
  Sender: FDA-Public Use
  Company Number: US-TORRENT-00008677

PATIENT
  Age: 78 Year
  Sex: Male

DRUGS (4)
  1. ALFUZOSIN HYDROCHLORIDE ER TABLETS [Suspect]
     Active Substance: ALFUZOSIN HYDROCHLORIDE
     Indication: POLYURIA
     Dates: end: 201907
  2. PANTOPRAZOLE [Concomitant]
     Active Substance: PANTOPRAZOLE
     Indication: GASTROOESOPHAGEAL REFLUX DISEASE
  3. FLOMAX [Concomitant]
     Active Substance: TAMSULOSIN HYDROCHLORIDE
     Indication: PRODUCT USED FOR UNKNOWN INDICATION
     Dosage: UNKNOWN
  4. LEVOTHYROXINE. [Concomitant]
     Active Substance: LEVOTHYROXINE
     Indication: THYROID DISORDER
     Dosage: 100/12 MICROGRAM

REACTIONS (4)
  - Dyspnoea [Unknown]
  - Drug ineffective for unapproved indication [Unknown]
  - Condition aggravated [Unknown]
  - Nasal disorder [Unknown]
